FAERS Safety Report 8760866 (Version 1)
Quarter: 2012Q4

REPORT INFORMATION
  Report Type: 
  Country: US (occurrence: US)
  Receive Date: 20120830
  Receipt Date: 20120830
  Transmission Date: 20130627
  Serious: Yes (Hospitalization)
  Sender: FDA-Public Use
  Company Number: US-JNJFOC-20120809687

PATIENT
  Sex: Female
  Weight: 80.29 kg

DRUGS (6)
  1. DURAGESIC [Suspect]
     Indication: VTH NERVE INJURY
     Route: 062
  2. DURAGESIC [Suspect]
     Indication: VTH NERVE INJURY
     Route: 062
  3. DURAGESIC [Suspect]
     Indication: VTH NERVE INJURY
     Route: 062
     Dates: end: 201112
  4. DURAGESIC [Suspect]
     Indication: VTH NERVE INJURY
     Route: 062
     Dates: start: 201208
  5. MORPHINE [Suspect]
     Indication: VTH NERVE INJURY
     Route: 048
     Dates: start: 201112
  6. METHADONE [Suspect]
     Indication: VTH NERVE INJURY
     Route: 048
     Dates: end: 201208

REACTIONS (12)
  - Arthralgia [Recovering/Resolving]
  - Intervertebral disc disorder [Unknown]
  - Hip fracture [Recovered/Resolved]
  - Foot fracture [Recovered/Resolved]
  - Neck pain [Unknown]
  - Memory impairment [Not Recovered/Not Resolved]
  - Drug ineffective [Unknown]
  - Drug ineffective [Not Recovered/Not Resolved]
  - Fall [Recovered/Resolved]
  - Exostosis [Unknown]
  - Adverse event [Unknown]
  - Product quality issue [Unknown]
